FAERS Safety Report 7712436-1 (Version None)
Quarter: 2011Q3

REPORT INFORMATION
  Report Type: 
  Country: None (occurrence: None)
  Receive Date: 20110826
  Receipt Date: 20110818
  Transmission Date: 20111222
  Serious: Yes (Hospitalization)
  Sender: FDA-Public Use
  Company Number: JP-JNJFOC-20110205236

PATIENT
  Sex: Female

DRUGS (15)
  1. TOPIRAMATE [Suspect]
     Route: 048
     Dates: start: 20090712, end: 20090723
  2. MYSTAN [Concomitant]
     Indication: LENNOX-GASTAUT SYNDROME
     Route: 048
  3. DEPAKENE [Concomitant]
     Indication: LENNOX-GASTAUT SYNDROME
     Route: 048
  4. METHYLPREDNISOLONE SODIUM SUCCINATE [Concomitant]
     Indication: STATUS EPILEPTICUS
     Route: 065
     Dates: start: 20090626, end: 20090628
  5. TOPIRAMATE [Suspect]
     Route: 048
     Dates: start: 20090724, end: 20090902
  6. ZONISAMIDE [Concomitant]
     Indication: LENNOX-GASTAUT SYNDROME
     Route: 048
     Dates: end: 20090925
  7. GABAPENTIN [Concomitant]
     Route: 048
     Dates: start: 20090321, end: 20090625
  8. GABAPENTIN [Concomitant]
     Route: 048
     Dates: start: 20090220, end: 20090320
  9. GABAPENTIN [Concomitant]
     Route: 048
     Dates: start: 20090626, end: 20090629
  10. METHYLPREDNISOLONE SODIUM SUCCINATE [Concomitant]
     Route: 065
     Dates: start: 20090710, end: 20090712
  11. METHYLPREDNISOLONE SODIUM SUCCINATE [Concomitant]
     Route: 065
     Dates: start: 20090703, end: 20090705
  12. TOPIRAMATE [Suspect]
     Route: 048
     Dates: start: 20090704, end: 20090711
  13. GABAPENTIN [Concomitant]
     Indication: LENNOX-GASTAUT SYNDROME
     Route: 048
     Dates: start: 20090630, end: 20090703
  14. TOPIRAMATE [Suspect]
     Indication: LENNOX-GASTAUT SYNDROME
     Route: 048
     Dates: start: 20090903
  15. GABAPENTIN [Concomitant]
     Route: 048
     Dates: start: 20090704, end: 20090706

REACTIONS (1)
  - STATUS EPILEPTICUS [None]
